FAERS Safety Report 7096100-0 (Version None)
Quarter: 2010Q4

REPORT INFORMATION
  Report Type: 
  Country: None (occurrence: None)
  Receive Date: 20101111
  Receipt Date: 20101101
  Transmission Date: 20110411
  Serious: Yes (Hospitalization, Other)
  Sender: FDA-Public Use
  Company Number: US-ROCHE-718681

PATIENT
  Sex: Male
  Weight: 113.4 kg

DRUGS (2)
  1. ACCUTANE [Suspect]
     Indication: ACNE
     Route: 065
     Dates: start: 19991008, end: 19991024
  2. ACCUTANE [Suspect]
     Dosage: DOSE INCREASED
     Route: 065
     Dates: start: 19991025, end: 20000131

REACTIONS (9)
  - APHTHOUS STOMATITIS [None]
  - CROHN'S DISEASE [None]
  - DEPRESSION [None]
  - DRY SKIN [None]
  - GASTROINTESTINAL INJURY [None]
  - INFLAMMATORY BOWEL DISEASE [None]
  - INTESTINAL STENOSIS [None]
  - LIP DRY [None]
  - SMALL INTESTINAL OBSTRUCTION [None]
